FAERS Safety Report 25129392 (Version 1)
Quarter: 2025Q1

REPORT INFORMATION
  Report Type: Other
  Country: US (occurrence: US)
  Receive Date: 20250327
  Receipt Date: 20250327
  Transmission Date: 20250409
  Serious: Yes (Hospitalization, Other)
  Sender: GLENMARK
  Company Number: US-GLENMARK PHARMACEUTICALS-2025GMK098780

PATIENT
  Sex: Male

DRUGS (1)
  1. LITHIUM CARBONATE [Suspect]
     Active Substance: LITHIUM CARBONATE
     Indication: Bipolar disorder
     Route: 048
     Dates: start: 20230926

REACTIONS (26)
  - Heart rate decreased [Unknown]
  - Agitation [Unknown]
  - Chest pain [Unknown]
  - Disturbance in attention [Unknown]
  - Feeling cold [Unknown]
  - Gastrointestinal disorder [Unknown]
  - Myocardial infarction [Unknown]
  - Cardiac flutter [Unknown]
  - Amnesia [Unknown]
  - Cerebrovascular accident [Unknown]
  - Muscle spasms [Unknown]
  - Pollakiuria [Unknown]
  - Tremor [Unknown]
  - Fatigue [Unknown]
  - Nausea [Unknown]
  - Abdominal distension [Unknown]
  - Bradycardia [Unknown]
  - Somnolence [Unknown]
  - Vertigo [Unknown]
  - Asthenia [Unknown]
  - Recalled product [Unknown]
  - Recalled product administered [Unknown]
  - Product substitution issue [Unknown]
  - Product impurity [Unknown]
  - Product solubility abnormal [Unknown]
  - Product physical issue [Unknown]
